FAERS Safety Report 7340101-1 (Version None)
Quarter: 2011Q1

REPORT INFORMATION
  Report Type: 
  Country: None (occurrence: None)
  Receive Date: 20110309
  Receipt Date: 20110302
  Transmission Date: 20110831
  Serious: Yes (Hospitalization, Other)
  Sender: FDA-Public Use
  Company Number: BR-BAYER-2011-019526

PATIENT
  Sex: Female

DRUGS (1)
  1. YAZ [Suspect]
     Indication: CONTRACEPTION
     Dosage: 24/4DAYS; 1 DF, QD
     Route: 048
     Dates: start: 20100801, end: 20110203

REACTIONS (4)
  - PREGNANCY ON CONTRACEPTIVE [None]
  - MENORRHAGIA [None]
  - RUPTURED ECTOPIC PREGNANCY [None]
  - ABDOMINAL PAIN [None]
